FAERS Safety Report 17401403 (Version 1)
Quarter: 2020Q1

REPORT INFORMATION
  Report Type: Spontaneous
  Country: US (occurrence: US)
  Receive Date: 20200210
  Receipt Date: 20200210
  Transmission Date: 20200409
  Serious: Yes (Hospitalization)
  Sender: FDA-Public Use
  Company Number: None

PATIENT
  Age: 70 Year
  Sex: Female
  Weight: 74.5 kg

DRUGS (9)
  1. PROAIR 108 MG [Concomitant]
  2. SPIRONOLACTONE 100 MG [Concomitant]
  3. ISTRADEFYLLINE [Suspect]
     Active Substance: ISTRADEFYLLINE
     Indication: PARKINSON^S DISEASE
     Route: 048
     Dates: start: 20191120, end: 20200107
  4. BREO ELIPTA 100-25 MG [Concomitant]
  5. RYTARY ER 23.75-95 MG [Concomitant]
  6. AMANTADINE 100 MG [Concomitant]
     Active Substance: AMANTADINE
     Dates: start: 20190502
  7. SELEGILINE 5 MG [Concomitant]
  8. CLONAZEPAM 0.5 MG [Concomitant]
     Active Substance: CLONAZEPAM
  9. OFLAXACIN 0.3% [Concomitant]

REACTIONS (4)
  - Hallucination [None]
  - Condition aggravated [None]
  - Seizure [None]
  - Fall [None]

NARRATIVE: CASE EVENT DATE: 20200210
